FAERS Safety Report 9746928 (Version 3)
Quarter: 2014Q1

REPORT INFORMATION
  Report Type: Spontaneous
  Country: US (occurrence: US)
  Receive Date: 20131211
  Receipt Date: 20140228
  Transmission Date: 20141002
  Serious: Yes (Other)
  Sender: FDA-Public Use
  Company Number: US-009507513-1312USA003874

PATIENT
  Sex: Female

DRUGS (1)
  1. NUVARING [Suspect]
     Indication: CONTRACEPTION
     Dosage: UNK
     Route: 067

REACTIONS (3)
  - Ectopic pregnancy [Unknown]
  - Unintended pregnancy [Unknown]
  - Maternal exposure during pregnancy [Unknown]
